FAERS Safety Report 5083546-5 (Version None)
Quarter: 2006Q3

REPORT INFORMATION
  Report Type: 
  Country: None (occurrence: None)
  Receive Date: 20060818
  Receipt Date: 20060814
  Transmission Date: 20061208
  Serious: Yes (Hospitalization)
  Sender: FDA-Public Use
  Company Number: GB-JNJFOC-20060803573

PATIENT
  Sex: Female

DRUGS (2)
  1. ORTHO EVRA [Suspect]
     Indication: CONTRACEPTION
     Route: 062
  2. ANTIBIOTICS [Interacting]
     Indication: GASTROENTERITIS VIRAL

REACTIONS (3)
  - DRUG INTERACTION [None]
  - GASTROENTERITIS VIRAL [None]
  - POLYMENORRHOEA [None]
